FAERS Safety Report 6024257-9 (Version None)
Quarter: 2008Q4

REPORT INFORMATION
  Report Type: 
  Country: None (occurrence: None)
  Receive Date: 20081229
  Receipt Date: 20081216
  Transmission Date: 20090506
  Serious: Yes (Other)
  Sender: FDA-Public Use
  Company Number: 2008SP021562

PATIENT
  Age: 45 Year
  Sex: Male

DRUGS (2)
  1. PEG-INTRON      (PEGINTERFERON ALFA-2B) [Suspect]
     Indication: HEPATITIS C
     Dosage: 100 MCG; QW; SC
     Route: 058
     Dates: start: 20070810
  2. REBETOL [Suspect]
     Indication: HEPATITIS C
     Dosage: 800 MG; QD; PO
     Route: 048
     Dates: start: 20070810

REACTIONS (2)
  - BILE DUCT STONE [None]
  - JAUNDICE CHOLESTATIC [None]
